FAERS Safety Report 15725595 (Version 4)
Quarter: 2019Q2

REPORT INFORMATION
  Report Type: Report from Study
  Country: None (occurrence: RO)
  Receive Date: 20181215
  Receipt Date: 20190409
  Transmission Date: 20190711
  Serious: Yes (Hospitalization)
  Sender: FDA-Public Use
  Company Number: RO-ABBVIE-18K-135-2585879-00

PATIENT
  Age: 35 Year
  Sex: Female

DRUGS (20)
  1. IMODIUM [Concomitant]
     Active Substance: LOPERAMIDE HYDROCHLORIDE
     Indication: DECREASED APPETITE
  2. FISH OIL [Concomitant]
     Active Substance: FISH OIL
     Indication: DECREASED APPETITE
  3. VITAMIN C [Concomitant]
     Active Substance: ASCORBIC ACID
     Indication: VOMITING
     Route: 048
     Dates: start: 20181113
  4. VITAMIN C [Concomitant]
     Active Substance: ASCORBIC ACID
     Indication: ABDOMINAL PAIN UPPER
  5. OMEGA 3 [Concomitant]
     Active Substance: OMEGA-3 FATTY ACIDS
     Indication: VOMITING
     Route: 048
     Dates: start: 20181113
  6. IMODIUM [Concomitant]
     Active Substance: LOPERAMIDE HYDROCHLORIDE
     Indication: VOMITING
     Dosage: 3-6 TABLETS/DAY
     Route: 048
     Dates: start: 2016
  7. HUMIRA [Suspect]
     Active Substance: ADALIMUMAB
     Indication: CROHN^S DISEASE
     Route: 058
     Dates: start: 20080101, end: 20181207
  8. HUMIRA [Suspect]
     Active Substance: ADALIMUMAB
     Route: 058
     Dates: start: 20181207
  9. FISH OIL [Concomitant]
     Active Substance: FISH OIL
     Indication: VOMITING
     Route: 048
     Dates: start: 20181113
  10. VITAMIN C [Concomitant]
     Active Substance: ASCORBIC ACID
     Indication: DECREASED APPETITE
  11. OMEGA 3 [Concomitant]
     Active Substance: OMEGA-3 FATTY ACIDS
     Indication: ABDOMINAL PAIN UPPER
  12. IMODIUM [Concomitant]
     Active Substance: LOPERAMIDE HYDROCHLORIDE
     Indication: FREQUENT BOWEL MOVEMENTS
  13. DETRICAL [Concomitant]
     Indication: FLUID REPLACEMENT
     Route: 048
     Dates: start: 201811
  14. HUMIRA [Suspect]
     Active Substance: ADALIMUMAB
     Route: 058
     Dates: start: 201901
  15. IMURAN [Concomitant]
     Active Substance: AZATHIOPRINE
     Indication: ABDOMINAL PAIN UPPER
  16. IMURAN [Concomitant]
     Active Substance: AZATHIOPRINE
     Indication: DECREASED APPETITE
  17. FISH OIL [Concomitant]
     Active Substance: FISH OIL
     Indication: ABDOMINAL PAIN UPPER
  18. OMEGA 3 [Concomitant]
     Active Substance: OMEGA-3 FATTY ACIDS
     Indication: DECREASED APPETITE
  19. IMURAN [Concomitant]
     Active Substance: AZATHIOPRINE
     Indication: VOMITING
     Route: 048
     Dates: start: 20181113, end: 20181203
  20. IMODIUM [Concomitant]
     Active Substance: LOPERAMIDE HYDROCHLORIDE
     Indication: ABDOMINAL PAIN UPPER

REACTIONS (13)
  - Weight decreased [Not Recovered/Not Resolved]
  - Rash macular [Not Recovered/Not Resolved]
  - Diarrhoea [Not Recovered/Not Resolved]
  - Dysstasia [Recovered/Resolved]
  - Hormone level abnormal [Unknown]
  - Diarrhoea [Recovered/Resolved]
  - Scratch [Not Recovered/Not Resolved]
  - General physical condition abnormal [Not Recovered/Not Resolved]
  - Memory impairment [Not Recovered/Not Resolved]
  - Somnolence [Not Recovered/Not Resolved]
  - Spinal fracture [Recovered/Resolved]
  - Rotavirus test positive [Not Recovered/Not Resolved]
  - Infertility [Not Recovered/Not Resolved]

NARRATIVE: CASE EVENT DATE: 2008
